FAERS Safety Report 9748208 (Version 1)
Quarter: 2013Q4

REPORT INFORMATION
  Report Type: Report from Study
  Country: US (occurrence: US)
  Receive Date: 20131212
  Receipt Date: 20131212
  Transmission Date: 20140711
  Serious: Yes (Hospitalization)
  Sender: FDA-Public Use
  Company Number: US-BAYER-2013-149241

PATIENT
  Age: 39 Year
  Sex: Male

DRUGS (2)
  1. BETASERON [Suspect]
     Indication: MULTIPLE SCLEROSIS
     Dosage: 8 MIU, QOD
     Route: 058
     Dates: start: 20130904
  2. ADVIL [Concomitant]
     Indication: PREMEDICATION
     Dosage: UNK UNK, QOD

REACTIONS (1)
  - Muscle spasms [Not Recovered/Not Resolved]
